FAERS Safety Report 17167138 (Version 1)
Quarter: 2019Q4

REPORT INFORMATION
  Report Type: Spontaneous
  Country: US (occurrence: US)
  Receive Date: 20191218
  Receipt Date: 20191218
  Transmission Date: 20200122
  Serious: Yes (Death, Other)
  Sender: FDA-Public Use
  Company Number: US-009507513-1912USA006734

PATIENT
  Age: 56 Year
  Sex: Female

DRUGS (2)
  1. JANUMET [Suspect]
     Active Substance: METFORMIN HYDROCHLORIDE\SITAGLIPTIN PHOSPHATE
     Indication: GLYCOSYLATED HAEMOGLOBIN INCREASED
     Dosage: UNKNOWN
     Route: 048
  2. JARDIANCE [Suspect]
     Active Substance: EMPAGLIFLOZIN
     Indication: GLYCOSYLATED HAEMOGLOBIN INCREASED
     Dosage: UNKNOWN

REACTIONS (5)
  - Cardiac arrest [Fatal]
  - Bladder obstruction [Unknown]
  - Urinary retention [Unknown]
  - Cataract [Unknown]
  - Blood potassium increased [Unknown]

NARRATIVE: CASE EVENT DATE: 201911
